FAERS Safety Report 16962767 (Version 2)
Quarter: 2019Q4

REPORT INFORMATION
  Report Type: Report from Study
  Country: US (occurrence: US)
  Receive Date: 20191025
  Receipt Date: 20191122
  Transmission Date: 20200122
  Serious: Yes (Death, Other)
  Sender: FDA-Public Use
  Company Number: US-ACTELION-A-NJ2019-191869

PATIENT
  Sex: Female
  Weight: 53.06 kg

DRUGS (1)
  1. UPTRAVI [Suspect]
     Active Substance: SELEXIPAG
     Indication: PULMONARY ARTERIAL HYPERTENSION
     Dosage: 400 MCG, BID
     Route: 048
     Dates: start: 20190503

REACTIONS (5)
  - Diarrhoea [Unknown]
  - Respiratory failure [Fatal]
  - Interstitial lung disease [Fatal]
  - Pulmonary hypertension [Unknown]
  - Transplant rejection [Unknown]
